FAERS Safety Report 5152862-0 (Version None)
Quarter: 2006Q4

REPORT INFORMATION
  Report Type: 
  Country: None (occurrence: None)
  Receive Date: 20060918
  Receipt Date: 20051118
  Transmission Date: 20070319
  Serious: Yes (Disabling)
  Sender: FDA-Public Use
  Company Number: PHEH2005US12720

PATIENT
  Age: 70 Year
  Sex: Female

DRUGS (6)
  1. FEMARA [Suspect]
     Indication: BREAST CANCER
     Dosage: 2.5 MG, QD, ORAL
     Route: 048
     Dates: start: 20041111, end: 20051118
  2. LEVOTHYROXINE SODIUM [Concomitant]
  3. QUINAPRIL HCL [Concomitant]
  4. INDAPAMIDE [Concomitant]
  5. DETROL -SLOW RELEASE (TOLTERODINE L-TARTRATE) [Concomitant]
  6. FOSAMAX [Concomitant]

REACTIONS (3)
  - ACTIVITIES OF DAILY LIVING IMPAIRED [None]
  - ARTHRALGIA [None]
  - WALKING AID USER [None]
